FAERS Safety Report 4356713-3 (Version None)
Quarter: 2004Q2

REPORT INFORMATION
  Report Type: 
  Country: None (occurrence: None)
  Receive Date: 20040506
  Receipt Date: 20040428
  Transmission Date: 20050107
  Serious: Yes (Life-Threatening, Hospitalization, Disabling)
  Sender: FDA-Public Use
  Company Number: 2004AP02369

PATIENT
  Age: 51 Year
  Sex: Male
  Weight: 64 kg

DRUGS (7)
  1. SEROQUEL [Suspect]
     Indication: SCHIZOPHRENIA
     Dosage: 200 MG DAILY PO
     Route: 048
     Dates: start: 20040302, end: 20040302
  2. ZYPREXA [Concomitant]
  3. HORIZON [Concomitant]
  4. AKINETON [Concomitant]
  5. LANDSEN [Concomitant]
  6. SELENASE [Concomitant]
  7. HALOPERIDOL [Concomitant]

REACTIONS (3)
  - ARRHYTHMIA [None]
  - CARDIO-RESPIRATORY ARREST [None]
  - LOSS OF CONSCIOUSNESS [None]
